FAERS Safety Report 13721742 (Version 1)
Quarter: 2017Q3

REPORT INFORMATION
  Report Type: Spontaneous
  Country: US (occurrence: US)
  Receive Date: 20170706
  Receipt Date: 20170706
  Transmission Date: 20171127
  Serious: No
  Sender: FDA-Public Use
  Company Number: US-PFIZER INC-2017225560

PATIENT
  Age: 59 Year
  Sex: Female

DRUGS (8)
  1. MAGNESIUM SULFATE. [Suspect]
     Active Substance: MAGNESIUM SULFATE
     Indication: MULTIPLE CHEMICAL SENSITIVITY
     Dosage: 1 ML, UNK
     Route: 042
     Dates: start: 20170506, end: 20170506
  2. VIT B5 (CALCIUM PANTOTHENATE) [Suspect]
     Active Substance: CALCIUM PANTOTHENATE
     Indication: MULTIPLE CHEMICAL SENSITIVITY
     Dosage: 1 ML, UNK
     Route: 042
     Dates: start: 20170506, end: 20170506
  3. VITAMIN B6 [Suspect]
     Active Substance: PYRIDOXINE HYDROCHLORIDE
     Indication: MULTIPLE CHEMICAL SENSITIVITY
     Dosage: 1 ML, UNK
     Route: 042
     Dates: start: 20170506, end: 20170506
  4. GLUTATHIONE [Concomitant]
     Active Substance: GLUTATHIONE
     Indication: MULTIPLE CHEMICAL SENSITIVITY
     Dosage: UNK
     Route: 042
     Dates: start: 20170506
  5. STERILE WATER [Suspect]
     Active Substance: WATER
     Indication: MULTIPLE CHEMICAL SENSITIVITY
     Dosage: 85 ML, UNK
     Route: 042
     Dates: start: 20170506, end: 20170506
  6. CALCIUM GLUCONATE. [Suspect]
     Active Substance: CALCIUM GLUCONATE
     Indication: MULTIPLE CHEMICAL SENSITIVITY
     Dosage: 1 ML, UNK
     Route: 042
     Dates: start: 20170506, end: 20170506
  7. VITAMIN C [Suspect]
     Active Substance: ASCORBIC ACID
     Indication: MULTIPLE CHEMICAL SENSITIVITY
     Dosage: 4 ML, UNK
     Route: 042
     Dates: start: 20170506, end: 20170506
  8. IMMUNOGLOBULIN IV [Concomitant]
     Active Substance: HUMAN IMMUNOGLOBULIN G
     Indication: MULTIPLE CHEMICAL SENSITIVITY
     Dosage: UNK
     Route: 042
     Dates: start: 20170506

REACTIONS (9)
  - Toxicity to various agents [Unknown]
  - Feeling abnormal [Unknown]
  - Hyperhidrosis [Unknown]
  - Malaise [Unknown]
  - Fatigue [Unknown]
  - Flushing [Unknown]
  - Chills [Unknown]
  - Dysgeusia [Unknown]
  - Expired product administered [Unknown]

NARRATIVE: CASE EVENT DATE: 20170506
